FAERS Safety Report 10239329 (Version 3)
Quarter: 2014Q2

REPORT INFORMATION
  Report Type: Spontaneous
  Country: IT (occurrence: IT)
  Receive Date: 20140616
  Receipt Date: 20140625
  Transmission Date: 20141212
  Serious: Yes (Other)
  Sender: FDA-Public Use
  Company Number: IT-PFIZER INC-2014160468

PATIENT
  Age: 74 Year
  Sex: Male
  Weight: 92 kg

DRUGS (5)
  1. CARDURA [Suspect]
     Indication: HYPERTENSION
     Dosage: 4 MG, DAILY
     Route: 048
     Dates: start: 20140301, end: 20140528
  2. NORVASC [Suspect]
     Indication: HYPERTENSION
     Dosage: 10 MG, DAILY
     Route: 048
     Dates: start: 20140301, end: 20140528
  3. TRIATEC [Suspect]
     Indication: HYPERTENSION
     Dosage: 10 MG, DAILY
     Route: 048
     Dates: start: 20140301, end: 20140528
  4. TOTALIP [Concomitant]
     Dosage: 10 MG, DAILY
  5. TICLOPIDINE [Concomitant]
     Dosage: 1 DF, DAILY

REACTIONS (1)
  - Hypertensive crisis [Recovered/Resolved]
